FAERS Safety Report 6788675-3 (Version None)
Quarter: 2010Q2

REPORT INFORMATION
  Report Type: 
  Country: None (occurrence: None)
  Receive Date: 20100623
  Receipt Date: 20080414
  Transmission Date: 20101027
  Serious: No
  Sender: FDA-Public Use
  Company Number: US-PFIZER INC-2008033611

PATIENT
  Age: 91 Year
  Sex: Female

DRUGS (3)
  1. XALATAN [Suspect]
     Indication: GLAUCOMA
     Route: 047
  2. XAL-EASE [Suspect]
  3. NO PRODUCT FOUND [Suspect]

REACTIONS (3)
  - DRUG ADMINISTRATION ERROR [None]
  - DRUG INEFFECTIVE [None]
  - SENSORY DISTURBANCE [None]
